FAERS Safety Report 6343594-1 (Version None)
Quarter: 2009Q3

REPORT INFORMATION
  Report Type: 
  Country: None (occurrence: None)
  Receive Date: 20090908
  Receipt Date: 20090806
  Transmission Date: 20100115
  Serious: No
  Sender: FDA-Public Use
  Company Number: US-BAYER-200930183NA

PATIENT
  Age: 21 Year
  Sex: Female
  Weight: 69 kg

DRUGS (2)
  1. ULTRAVIST PHARMACY BULK PACKAGE 370 [Suspect]
     Indication: COMPUTERISED TOMOGRAM ABDOMEN
     Dosage: AS USED: 100 ML  UNIT DOSE: 500 ML
     Route: 042
     Dates: start: 20090806, end: 20090806
  2. ULTRAVIST PHARMACY BULK PACKAGE 370 [Suspect]
     Route: 048
     Dates: start: 20090806, end: 20090806

REACTIONS (2)
  - PRURITUS [None]
  - URTICARIA [None]
